FAERS Safety Report 10378036 (Version 1)
Quarter: 2014Q1

REPORT INFORMATION
  Report Type: Spontaneous
  Country: US (occurrence: None)
  Receive Date: 20140306
  Receipt Date: 20140306
  Transmission Date: 20141002
  Serious: Yes (Hospitalization)
  Sender: FDA-Public Use
  Company Number: 163-21880-13013768

PATIENT
  Age: 72 Year
  Sex: Female

DRUGS (9)
  1. REVLIMID (LENALIDOMIDE) (CAPSULES) [Suspect]
     Indication: CHRONIC MYELOMONOCYTIC LEUKAEMIA
     Dosage: 21 IN 21 D
     Route: 048
     Dates: start: 20120302
  2. WARFARIN SODIUM [Concomitant]
  3. CALCIUM 500 + D (CALCIUM + VIT D) [Concomitant]
  4. DEXAMETHASONE [Concomitant]
  5. GABAPENTIN [Concomitant]
  6. HYDROCODONE-ACETAMINOPHEN (REMEDEINE) [Concomitant]
  7. OMEPRAZOLE [Concomitant]
  8. PANTOPRAZOLE SODIUM [Concomitant]
  9. VICODIN [Concomitant]

REACTIONS (1)
  - Influenza [None]
